FAERS Safety Report 9184205 (Version 1)
Quarter: 2013Q1

REPORT INFORMATION
  Report Type: Spontaneous
  Country: US (occurrence: US)
  Receive Date: 20130322
  Receipt Date: 20130322
  Transmission Date: 20140127
  Serious: No
  Sender: FDA-Public Use
  Company Number: US-BRISTOL-MYERS SQUIBB COMPANY-16461949

PATIENT
  Age: 77 Year
  Sex: Female

DRUGS (1)
  1. ERBITUX [Suspect]
     Indication: THROAT CANCER
     Dosage: RECENT TREATMENT ON 15-MAR-2012.

REACTIONS (5)
  - Fatigue [Unknown]
  - Disturbance in attention [Unknown]
  - Radiation skin injury [Unknown]
  - Weight decreased [Unknown]
  - Pain in extremity [Unknown]
